FAERS Safety Report 25475437 (Version 1)
Quarter: 2025Q2

REPORT INFORMATION
  Report Type: Spontaneous
  Country: IT (occurrence: IT)
  Receive Date: 20250624
  Receipt Date: 20250624
  Transmission Date: 20250716
  Serious: Yes (Other)
  Sender: AMGEN
  Company Number: IT-AMGEN-ITASP2025121582

PATIENT

DRUGS (1)
  1. ADALIMUMAB [Suspect]
     Active Substance: ADALIMUMAB
     Indication: Psoriatic arthropathy
     Route: 065

REACTIONS (18)
  - Hypertensive crisis [Unknown]
  - Transient ischaemic attack [Unknown]
  - Ischaemic cardiomyopathy [Unknown]
  - Pneumonia [Unknown]
  - Lower respiratory tract infection [Unknown]
  - Prostatitis [Unknown]
  - Injection site erythema [Unknown]
  - Peripheral ischaemia [Unknown]
  - Injection site swelling [Unknown]
  - Injection site pain [Unknown]
  - Tooth infection [Unknown]
  - Eye infection [Unknown]
  - Herpes simplex [Unknown]
  - Urinary tract infection [Unknown]
  - Upper respiratory tract infection [Unknown]
  - Herpes zoster [Unknown]
  - Skin infection [Unknown]
  - Drug ineffective [Unknown]
